FAERS Safety Report 4277191-9 (Version None)
Quarter: 2004Q1

REPORT INFORMATION
  Report Type: 
  Country: None (occurrence: None)
  Receive Date: 20040120
  Receipt Date: 20040107
  Transmission Date: 20041129
  Serious: Yes (Other)
  Sender: FDA-Public Use
  Company Number: HQWYE263913JAN04

PATIENT
  Age: 39 Year
  Sex: Female

DRUGS (2)
  1. EFFEXOR [Suspect]
     Dosage: SEE IMAGE
     Route: 048
  2. DIAZEPAM [Suspect]
     Dosage: 10 MG 1X PER 1 DAY

REACTIONS (2)
  - DRUG INTERACTION [None]
  - HYPOTENSION [None]
